FAERS Safety Report 8882079 (Version 1)
Quarter: 2012Q4

REPORT INFORMATION
  Report Type: 
  Country: AR (occurrence: AR)
  Receive Date: 20121102
  Receipt Date: 20121102
  Transmission Date: 20130627
  Serious: Yes (Other)
  Sender: FDA-Public Use
  Company Number: AR-ABBOTT-12P-007-0999432-00

PATIENT
  Age: 16 Year
  Sex: Male
  Weight: 60 kg

DRUGS (2)
  1. VALCOTE [Suspect]
     Indication: SCHIZOPHRENIA
     Dosage: 2, 0000 mg
     Route: 048
     Dates: start: 20111011
  2. CLOZAPINE [Concomitant]
     Indication: SCHIZOPHRENIA
     Route: 048

REACTIONS (3)
  - Drug administration error [Recovering/Resolving]
  - Accidental overdose [Recovering/Resolving]
  - Somnolence [Recovering/Resolving]
